FAERS Safety Report 12613885 (Version 2)
Quarter: 2016Q3

REPORT INFORMATION
  Report Type: Spontaneous
  Country: US (occurrence: US)
  Receive Date: 20160802
  Receipt Date: 20160912
  Transmission Date: 20161109
  Serious: No
  Sender: FDA-Public Use
  Company Number: US-PFIZER INC-2016358600

PATIENT
  Age: 48 Year
  Sex: Female

DRUGS (10)
  1. GLIPIZIDE. [Concomitant]
     Active Substance: GLIPIZIDE
     Dosage: 2.5 MG (1 TABLET), 1X/DAY (AT BEDTIME)
     Route: 048
  2. LEVEMIR [Concomitant]
     Active Substance: INSULIN DETEMIR
     Dosage: 15 IU, DAILY (AT BEDTIME)
     Route: 058
     Dates: start: 20151215
  3. CYCLOBENZAPRINE HCL [Concomitant]
     Active Substance: CYCLOBENZAPRINE HYDROCHLORIDE
     Dosage: 10 MG (1 TABLET), AT BEDTIME AS NEEDED
     Route: 048
     Dates: start: 20150910
  4. LYRICA [Suspect]
     Active Substance: PREGABALIN
     Dosage: 50 MG, 3X/DAY
     Route: 048
     Dates: start: 20150619
  5. GLIPIZIDE. [Concomitant]
     Active Substance: GLIPIZIDE
     Dosage: 5 MG (1 TABLET), 2X/DAY
     Route: 048
  6. PANTOPRAZOLE SODIUM. [Concomitant]
     Active Substance: PANTOPRAZOLE SODIUM
     Dosage: 40 MG (1 TABLET), 1X/DAY
     Route: 048
     Dates: start: 20150826
  7. SIMVASTATIN. [Concomitant]
     Active Substance: SIMVASTATIN
     Dosage: 5 MG (1 TABLET), 1X/DAY (IN THE EVENING)
     Route: 048
  8. SINGULAIR [Concomitant]
     Active Substance: MONTELUKAST SODIUM
     Dosage: 10 MG (1 TABLET), 1X/DAY (IN THE EVENING)
     Route: 048
  9. LYRICA [Suspect]
     Active Substance: PREGABALIN
     Indication: FIBROMYALGIA
     Dosage: 75 MG, 2X/DAY
     Route: 048
  10. ACETAMINOPHEN AND CODEINE [Concomitant]
     Active Substance: ACETAMINOPHEN\CODEINE PHOSPHATE
     Dosage: 1 TABLET (300 MG ACETAMINOPHEN-30 MG CODEINE), AS NEEDED EVERY 6 HOURS
     Route: 048
     Dates: start: 20141113

REACTIONS (1)
  - Withdrawal syndrome [Unknown]
